FAERS Safety Report 16395696 (Version 1)
Quarter: 2019Q2

REPORT INFORMATION
  Report Type: Spontaneous
  Country: AU (occurrence: AU)
  Receive Date: 20190605
  Receipt Date: 20190605
  Transmission Date: 20190711
  Serious: Yes (Death, Other)
  Sender: FDA-Public Use
  Company Number: AU-MYLANLABS-2019M1052480

PATIENT
  Age: 60 Year
  Sex: Female

DRUGS (6)
  1. DEXAMETHASONE. [Suspect]
     Active Substance: DEXAMETHASONE
     Dosage: 40 MILLIGRAM, QW
     Route: 048
  2. PEGFILGRASTIM [Concomitant]
     Active Substance: PEGFILGRASTIM
     Indication: PROPHYLAXIS
     Dosage: ADDED AT 8 MONTHS FOR EACH CYCLE
     Route: 065
  3. LENALIDOMIDE [Suspect]
     Active Substance: LENALIDOMIDE
     Indication: PLASMA CELL MYELOMA
     Dosage: FOR 21 DAYS IN A 28 DAY CYCLE
     Route: 065
  4. GAMMAGLOBULIN [Concomitant]
     Active Substance: HUMAN IMMUNOGLOBULIN G
     Indication: PARESIS
     Dosage: INITIATED AT 7 MONTHS
     Route: 042
  5. DEXAMETHASONE. [Suspect]
     Active Substance: DEXAMETHASONE
     Indication: PLASMA CELL MYELOMA
     Dosage: RECEIVED EIGHT DOSES OF DEXAMETHASONE 20MG PER CYCLE (COMPLETED 4 CYCLES)
     Route: 048
  6. DEXAMETHASONE. [Suspect]
     Active Substance: DEXAMETHASONE
     Dosage: ONGOING DEXAMETHASONE
     Route: 048

REACTIONS (3)
  - Progressive multifocal leukoencephalopathy [Fatal]
  - Infection reactivation [Fatal]
  - JC virus infection [Fatal]
